FAERS Safety Report 20692094 (Version 1)
Quarter: 2022Q2

REPORT INFORMATION
  Report Type: Spontaneous
  Country: US (occurrence: US)
  Receive Date: 20220409
  Receipt Date: 20220409
  Transmission Date: 20220720
  Serious: No
  Sender: FDA-Public Use
  Company Number: US-SA-SAC20220407000353

PATIENT
  Age: 80 Year
  Sex: Female

DRUGS (4)
  1. DUPIXENT [Suspect]
     Active Substance: DUPILUMAB
     Indication: Asthma
     Dosage: 300 MG, QOW
     Route: 058
     Dates: start: 202110
  2. LATANOPROST [Concomitant]
     Active Substance: LATANOPROST
     Dosage: UNK
  3. NP THYROID [Concomitant]
     Active Substance: LEVOTHYROXINE\LIOTHYRONINE
     Dosage: UNK
  4. HERBALS\TURMERIC [Concomitant]
     Active Substance: HERBALS\TURMERIC
     Dosage: 450MG-50MG

REACTIONS (3)
  - Dry skin [Unknown]
  - Dyspnoea exertional [Unknown]
  - Product use issue [Unknown]

NARRATIVE: CASE EVENT DATE: 20211001
